FAERS Safety Report 7509297-2 (Version None)
Quarter: 2011Q2

REPORT INFORMATION
  Report Type: 
  Country: None (occurrence: None)
  Receive Date: 20110527
  Receipt Date: 20110523
  Transmission Date: 20111010
  Serious: Yes (Hospitalization)
  Sender: FDA-Public Use
  Company Number: ES-ABBOTT-10P-144-0687917-00

PATIENT
  Age: 66 Year
  Sex: Female
  Weight: 52 kg

DRUGS (5)
  1. QUETIAPINE [Interacting]
  2. VALPROIC ACID [Suspect]
     Indication: BIPOLAR DISORDER
     Dates: start: 20040420, end: 20070901
  3. QUETIAPINE [Interacting]
     Indication: PRODUCT USED FOR UNKNOWN INDICATION
     Dates: start: 20070301
  4. VALPROIC ACID [Interacting]
  5. CLOPIDOGREL [Concomitant]
     Indication: PRODUCT USED FOR UNKNOWN INDICATION

REACTIONS (3)
  - DRUG INTERACTION [None]
  - PARKINSONISM [None]
  - COGNITIVE DISORDER [None]
